FAERS Safety Report 23747170 (Version 1)
Quarter: 2024Q2

REPORT INFORMATION
  Report Type: Spontaneous
  Country: US (occurrence: None)
  Receive Date: 20240415
  Receipt Date: 20240415
  Transmission Date: 20240716
  Serious: Yes (Hospitalization)
  Sender: FDA-Public Use
  Company Number: None

PATIENT
  Age: 75 Year
  Sex: Male
  Weight: 89.4 kg

DRUGS (1)
  1. SULFUR HEXAFLUORIDE [Suspect]
     Active Substance: SULFUR HEXAFLUORIDE
     Indication: Coronary artery disease
     Dosage: 5 ML ONCE INTRAVENOUS
     Route: 042
     Dates: start: 20240409, end: 20240409

REACTIONS (6)
  - Flushing [None]
  - Nausea [None]
  - Cardiac arrest [None]
  - Agonal respiration [None]
  - Carotid pulse decreased [None]
  - Pulse absent [None]

NARRATIVE: CASE EVENT DATE: 20240409
